FAERS Safety Report 19239066 (Version 1)
Quarter: 2021Q2

REPORT INFORMATION
  Report Type: Spontaneous
  Country: GB (occurrence: GB)
  Receive Date: 20210510
  Receipt Date: 20210510
  Transmission Date: 20210717
  Serious: Yes (Other)
  Sender: FDA-Public Use
  Company Number: GB-TEVA-2021-GB-1908903

PATIENT
  Age: 39 Year
  Sex: Female
  Weight: 57 kg

DRUGS (12)
  1. METOCLOPRAMIDE. [Concomitant]
     Active Substance: METOCLOPRAMIDE
     Dosage: 1 DOSAGE FORMS
     Dates: start: 20210129, end: 20210205
  2. IBUPROFEN. [Concomitant]
     Active Substance: IBUPROFEN
     Dosage: 1?2 TABLET
     Dates: start: 20210129, end: 20210205
  3. VENLAFAXINE [Suspect]
     Active Substance: VENLAFAXINE HYDROCHLORIDE
     Dosage: 37.5MG
     Route: 065
     Dates: start: 20210415, end: 20210423
  4. NALOXONE HYDROCHLORIDE. [Concomitant]
     Active Substance: NALOXONE HYDROCHLORIDE
     Dosage: USE AS DIRECTED
     Dates: start: 20210223, end: 20210323
  5. PROMETHAZINE HYDROCHLORIDE. [Concomitant]
     Active Substance: PROMETHAZINE HYDROCHLORIDE
     Dosage: 2 DOSAGE FORMS
     Dates: start: 20210224, end: 20210227
  6. METHADONE [Concomitant]
     Active Substance: METHADONE HYDROCHLORIDE
     Dosage: 30ML
     Dates: start: 20210403
  7. PREGABALIN. [Concomitant]
     Active Substance: PREGABALIN
     Dosage: 1 DOSAGE FORMS
     Dates: start: 20210204, end: 20210205
  8. LOPERAMIDE [Concomitant]
     Active Substance: LOPERAMIDE
     Dosage: 1 DOSAGE FORMS
     Dates: start: 20210129, end: 20210205
  9. MEBEVERINE HYDROCHLORIDE [Concomitant]
     Active Substance: MEBEVERINE HYDROCHLORIDE
     Dosage: 1 DOSAGE FORMS
     Dates: start: 20210129, end: 20210205
  10. PARACETAMOL [Concomitant]
     Active Substance: ACETAMINOPHEN
     Dosage: 1?2 TABLET
     Dates: start: 20210418, end: 20210418
  11. FLUOXETINE [Concomitant]
     Active Substance: FLUOXETINE HYDROCHLORIDE
     Dosage: 1 DOSAGE FORMS
     Dates: start: 20210130, end: 20210415
  12. SALBUTAMOL [Concomitant]
     Active Substance: ALBUTEROL
     Dosage: 2 ACTUATION
     Dates: start: 20210129

REACTIONS (1)
  - Electrocardiogram QT prolonged [Recovered/Resolved]

NARRATIVE: CASE EVENT DATE: 20210427
